FAERS Safety Report 15186922 (Version 1)
Quarter: 2018Q3

REPORT INFORMATION
  Report Type: Report from Study
  Country: US (occurrence: US)
  Receive Date: 20180723
  Receipt Date: 20180723
  Transmission Date: 20181010
  Serious: No
  Sender: FDA-Public Use
  Company Number: US-EXELIXIS-CABO-18012594

PATIENT
  Sex: Male

DRUGS (8)
  1. REMERON [Concomitant]
     Active Substance: MIRTAZAPINE
  2. LASIX [Concomitant]
     Active Substance: FUROSEMIDE
  3. ZESTRIL [Concomitant]
     Active Substance: LISINOPRIL
  4. NORVASC [Concomitant]
     Active Substance: AMLODIPINE BESYLATE
  5. CLARITIN [Concomitant]
     Active Substance: LORATADINE
  6. ZOCOR [Concomitant]
     Active Substance: SIMVASTATIN
  7. NOVOLIN [Concomitant]
     Active Substance: INSULIN HUMAN
  8. CABOMETYX [Suspect]
     Active Substance: CABOZANTINIB S-MALATE
     Indication: RENAL CANCER
     Dosage: 40 MG, QD
     Route: 048
     Dates: start: 20171107

REACTIONS (5)
  - Tinnitus [Unknown]
  - Abdominal discomfort [Unknown]
  - Blood pressure increased [Unknown]
  - Peripheral swelling [Unknown]
  - Dizziness [Unknown]
